FAERS Safety Report 4304381-9 (Version None)
Quarter: 2004Q1

REPORT INFORMATION
  Report Type: 
  Country: None (occurrence: None)
  Receive Date: 20040224
  Receipt Date: 20040213
  Transmission Date: 20041129
  Serious: Yes (Hospitalization)
  Sender: FDA-Public Use
  Company Number: HQWYE121418FEB04

PATIENT
  Sex: Male

DRUGS (1)
  1. CORDARONE [Suspect]
     Dosage: TWO 200 MG TABLETS TWICE DAILY, ORAL
     Route: 048
     Dates: start: 20020601, end: 20030101

REACTIONS (5)
  - ASTHENIA [None]
  - LUNG DISORDER [None]
  - NAUSEA [None]
  - POLYTRAUMATISM [None]
  - VOMITING [None]
